FAERS Safety Report 6860312-9 (Version None)
Quarter: 2010Q3

REPORT INFORMATION
  Report Type: 
  Country: None (occurrence: None)
  Receive Date: 20100720
  Receipt Date: 20100422
  Transmission Date: 20110219
  Serious: Yes (Other)
  Sender: FDA-Public Use
  Company Number: PHHY2010JP17739

PATIENT
  Sex: Female

DRUGS (5)
  1. LUDIOMIL [Suspect]
     Indication: DEPRESSION
     Dosage: 3 DFDAILY
     Route: 048
     Dates: start: 20100309, end: 20100322
  2. TEGRETOL [Suspect]
     Indication: TINNITUS
     Dosage: UNK
     Route: 048
     Dates: start: 20100223, end: 20100322
  3. CONTOMIN [Suspect]
     Indication: DEPRESSION
     Dosage: 100 MG DAILY
     Route: 048
     Dates: start: 20100309, end: 20100322
  4. LAXOBERON [Concomitant]
     Indication: CONSTIPATION
     Dosage: UNK
     Route: 048
     Dates: start: 20100319, end: 20100322
  5. MOHRUS TAPE [Concomitant]
     Indication: ARTHRALGIA
     Route: 061

REACTIONS (19)
  - ALANINE AMINOTRANSFERASE INCREASED [None]
  - ASPARTATE AMINOTRANSFERASE INCREASED [None]
  - BASOPHIL COUNT INCREASED [None]
  - BLOOD ALKALINE PHOSPHATASE INCREASED [None]
  - BLOOD LACTATE DEHYDROGENASE INCREASED [None]
  - ECZEMA [None]
  - EOSINOPHIL COUNT INCREASED [None]
  - ERYTHEMA [None]
  - GAMMA-GLUTAMYLTRANSFERASE INCREASED [None]
  - GENERALISED ERYTHEMA [None]
  - HAEMORRHAGE SUBCUTANEOUS [None]
  - LIVER DISORDER [None]
  - LYMPHOCYTE COUNT DECREASED [None]
  - OROPHARYNGEAL PAIN [None]
  - PLATELET COUNT DECREASED [None]
  - RASH [None]
  - RASH MACULAR [None]
  - TONGUE OEDEMA [None]
  - TOXIC SKIN ERUPTION [None]
